APPROVED DRUG PRODUCT: TRIAMTERENE AND HYDROCHLOROTHIAZIDE
Active Ingredient: HYDROCHLOROTHIAZIDE; TRIAMTERENE
Strength: 25MG;37.5MG
Dosage Form/Route: CAPSULE;ORAL
Application: A074857 | Product #001
Applicant: NOVARTIS PHARMACEUTICALS CORP
Approved: Sep 9, 1997 | RLD: No | RS: No | Type: DISCN